FAERS Safety Report 6305750-8 (Version None)
Quarter: 2009Q3

REPORT INFORMATION
  Report Type: 
  Country: None (occurrence: None)
  Receive Date: 20090812
  Receipt Date: 20090803
  Transmission Date: 20100115
  Serious: Yes (Hospitalization)
  Sender: FDA-Public Use
  Company Number: US-BIOGENIDEC-2008BI032110

PATIENT
  Age: 63 Year
  Sex: Female

DRUGS (9)
  1. AVONEX [Suspect]
     Indication: MULTIPLE SCLEROSIS
     Route: 030
     Dates: start: 20030101
  2. AVONEX [Suspect]
     Route: 030
     Dates: start: 19990307, end: 20030101
  3. XANAX [Concomitant]
     Indication: DRUG USE FOR UNKNOWN INDICATION
  4. PROZAC [Concomitant]
     Indication: DRUG USE FOR UNKNOWN INDICATION
  5. ZANAFLEX [Concomitant]
     Indication: MUSCLE SPASTICITY
  6. BACLOFEN [Concomitant]
     Indication: DRUG USE FOR UNKNOWN INDICATION
  7. TEGRETOL [Concomitant]
     Indication: DRUG USE FOR UNKNOWN INDICATION
  8. LORCET-HD [Concomitant]
     Indication: DRUG USE FOR UNKNOWN INDICATION
  9. RESTORIL [Concomitant]
     Indication: DRUG USE FOR UNKNOWN INDICATION

REACTIONS (11)
  - BALANCE DISORDER [None]
  - CEREBELLAR ATAXIA [None]
  - CEREBROVASCULAR ACCIDENT [None]
  - DYSARTHRIA [None]
  - DYSPHONIA [None]
  - GAIT DISTURBANCE [None]
  - HYPERREFLEXIA [None]
  - NYSTAGMUS [None]
  - OPHTHALMOPLEGIA [None]
  - OPTICOKINETIC NYSTAGMUS TESTS ABNORMAL [None]
  - VISUAL ACUITY REDUCED [None]
